FAERS Safety Report 7783567-5 (Version None)
Quarter: 2011Q3

REPORT INFORMATION
  Report Type: 
  Country: None (occurrence: None)
  Receive Date: 20110928
  Receipt Date: 20110825
  Transmission Date: 20111222
  Serious: No
  Sender: FDA-Public Use
  Company Number: US-MYLANLABS-2011S1017923

PATIENT
  Age: 83 Year
  Sex: Female
  Weight: 60.78 kg

DRUGS (9)
  1. LETROZOLE [Suspect]
     Indication: BREAST CANCER
     Route: 048
     Dates: start: 20110701
  2. LIPITOR [Concomitant]
     Indication: BLOOD CHOLESTEROL INCREASED
  3. NORVASC [Concomitant]
     Indication: BLOOD PRESSURE INCREASED
  4. RESTORIL [Concomitant]
     Indication: INSOMNIA
  5. SOTALOL HCL [Concomitant]
     Indication: ATRIAL FIBRILLATION
  6. RECLAST [Concomitant]
     Indication: OSTEOPOROSIS
     Route: 042
  7. LISINOPRIL [Concomitant]
     Indication: BLOOD PRESSURE INCREASED
  8. LEVOTHYROXINE SODIUM [Concomitant]
     Indication: HYPOTHYROIDISM
  9. COUMADIN [Concomitant]
     Indication: ATRIAL FIBRILLATION

REACTIONS (1)
  - ALOPECIA [None]
